FAERS Safety Report 5000589-8 (Version None)
Quarter: 2006Q2

REPORT INFORMATION
  Report Type: 
  Country: None (occurrence: None)
  Receive Date: 20060512
  Receipt Date: 20060505
  Transmission Date: 20061013
  Serious: Yes (Other)
  Sender: FDA-Public Use
  Company Number: US-JNJFOC-20060501395

PATIENT
  Sex: Female

DRUGS (8)
  1. TYLENOL (CAPLET) [Suspect]
     Route: 048
  2. TYLENOL (CAPLET) [Suspect]
     Indication: ARTHRITIS
     Route: 048
  3. OCUVITE [Concomitant]
  4. OCUVITE [Concomitant]
  5. OCUVITE [Concomitant]
  6. BETOPTIC [Concomitant]
  7. HYPERTENSION MEDICATION [Concomitant]
  8. CALCIUM GLUCONATE [Concomitant]

REACTIONS (1)
  - MACULAR DEGENERATION [None]
